FAERS Safety Report 6075233-1 (Version None)
Quarter: 2009Q1

REPORT INFORMATION
  Report Type: 
  Country: None (occurrence: None)
  Receive Date: 20090212
  Receipt Date: 20090204
  Transmission Date: 20090719
  Serious: Yes (Hospitalization)
  Sender: FDA-Public Use
  Company Number: US-BIOGENIDEC-2007BI020522

PATIENT
  Age: 46 Year
  Sex: Female
  Weight: 92 kg

DRUGS (2)
  1. AVONEX [Suspect]
     Indication: MULTIPLE SCLEROSIS
     Route: 030
     Dates: start: 19980601, end: 20080101
  2. AVONEX [Suspect]
     Route: 030
     Dates: start: 20080101, end: 20090101

REACTIONS (4)
  - BLOOD PRESSURE INCREASED [None]
  - DIABETES MELLITUS [None]
  - HYSTERECTOMY [None]
  - INFECTED CYST [None]
